FAERS Safety Report 7906966-7 (Version None)
Quarter: 2011Q4

REPORT INFORMATION
  Report Type: 
  Country: None (occurrence: None)
  Receive Date: 20111109
  Receipt Date: 20111109
  Transmission Date: 20120403
  Serious: No
  Sender: FDA-Public Use
  Company Number: None

PATIENT
  Sex: Male
  Weight: 92.3977 kg

DRUGS (1)
  1. YERVOY [Suspect]
     Indication: METASTATIC MALIGNANT MELANOMA
     Dosage: 280 MG Q3 WEEKS IV
     Route: 042
     Dates: start: 20111103

REACTIONS (2)
  - INFUSION RELATED REACTION [None]
  - MUSCLE SPASMS [None]
